FAERS Safety Report 10254116 (Version 1)
Quarter: 2014Q2

REPORT INFORMATION
  Report Type: Spontaneous
  Country: KR (occurrence: KR)
  Receive Date: 20140623
  Receipt Date: 20140623
  Transmission Date: 20141212
  Serious: Yes (Other)
  Sender: FDA-Public Use
  Company Number: KR-009507513-1406KOR008904

PATIENT
  Age: 84 Year
  Sex: Female
  Weight: 49 kg

DRUGS (5)
  1. FOSAMAX 70MG TABLET [Suspect]
     Indication: OSTEOPOROSIS
     Dosage: 70 MG, QW
     Route: 048
     Dates: start: 20040116, end: 200901
  2. CALCIO (CALCITRIOL) [Concomitant]
     Indication: OSTEOPOROSIS
     Dosage: DAILY DOSAGE-0.25 MG
     Route: 048
     Dates: start: 20040116, end: 20111004
  3. CALCIO (CALCITRIOL) [Concomitant]
     Indication: VITAMIN D DEFICIENCY
  4. CELEBREX [Concomitant]
     Indication: ANALGESIC THERAPY
     Dosage: DAILY DOSAGE-200 MG
     Route: 048
     Dates: start: 20040330, end: 20090223
  5. DECA-DURABOLIN [Concomitant]
     Dosage: DOSAGE FORM-AMPLE,DAILY DOSAGE-50 MG/MONTH
     Route: 030
     Dates: start: 20070827, end: 20100914

REACTIONS (2)
  - Bone debridement [Recovered/Resolved]
  - Osteonecrosis of jaw [Recovered/Resolved]
